FAERS Safety Report 8832005 (Version 4)
Quarter: 2013Q1

REPORT INFORMATION
  Report Type: Report from Study
  Country: JP (occurrence: JP)
  Receive Date: 20121009
  Receipt Date: 20130218
  Transmission Date: 20140127
  Serious: Yes (Life-Threatening, Hospitalization, Other)
  Sender: FDA-Public Use
  Company Number: JP-ROCHE-1035657

PATIENT
  Age: 77 Year
  Sex: Female

DRUGS (17)
  1. TOCILIZUMAB [Suspect]
     Indication: RHEUMATOID ARTHRITIS
     Route: 041
     Dates: start: 20090730, end: 20090730
  2. TOCILIZUMAB [Suspect]
     Indication: RHEUMATOID ARTHRITIS
     Route: 041
     Dates: start: 20101028, end: 20101125
  3. TOCILIZUMAB [Suspect]
     Indication: RHEUMATOID ARTHRITIS
     Route: 041
     Dates: start: 20110106, end: 20110706
  4. TOCILIZUMAB [Suspect]
     Indication: RHEUMATOID ARTHRITIS
     Route: 041
     Dates: start: 20110810, end: 20111212
  5. TOCILIZUMAB [Suspect]
     Indication: RHEUMATOID ARTHRITIS
     Route: 041
     Dates: start: 20120118, end: 20120118
  6. RHEUMATREX [Suspect]
     Indication: RHEUMATOID ARTHRITIS
     Route: 048
     Dates: start: 2000, end: 201012
  7. GASTER D [Suspect]
     Indication: PROPHYLAXIS
     Route: 048
     Dates: end: 20101229
  8. SUCRALFATE [Concomitant]
     Indication: PROPHYLAXIS
     Route: 048
  9. BENET [Concomitant]
     Indication: OSTEOPOROSIS
     Route: 048
     Dates: end: 20111106
  10. BENET [Concomitant]
     Indication: OSTEOPOROSIS
     Route: 048
     Dates: start: 201111
  11. NABOAL [Concomitant]
     Indication: RHEUMATOID ARTHRITIS
     Route: 048
  12. MECOBALAMIN [Concomitant]
     Route: 048
  13. PROMAC [Concomitant]
     Indication: PROPHYLAXIS
     Route: 048
  14. EPADEL [Concomitant]
     Route: 048
  15. CALFINA [Concomitant]
     Indication: RHEUMATOID ARTHRITIS
     Route: 048
  16. DAIO-KANZO-TO [Concomitant]
     Route: 048
     Dates: end: 20111002
  17. MINODRONIC ACID [Concomitant]
     Indication: OSTEOPOROSIS
     Route: 048
     Dates: start: 20111107

REACTIONS (4)
  - Gastric cancer [Recovered/Resolved]
  - Abscess [Recovered/Resolved]
  - Pancytopenia [Recovering/Resolving]
  - Lung neoplasm malignant [Recovering/Resolving]
